FAERS Safety Report 14567617 (Version 1)
Quarter: 2018Q1

REPORT INFORMATION
  Report Type: Spontaneous
  Country: JP (occurrence: JP)
  Receive Date: 20180223
  Receipt Date: 20180223
  Transmission Date: 20180509
  Serious: Yes (Death)
  Sender: FDA-Public Use
  Company Number: JP-ACTELION-A-CH2018-167826

PATIENT
  Age: 70 Year
  Sex: Male

DRUGS (3)
  1. PALUX [Concomitant]
     Active Substance: ALPROSTADIL
  2. ADCIRCA [Concomitant]
     Active Substance: TADALAFIL
  3. OPSUMIT [Suspect]
     Active Substance: MACITENTAN
     Indication: SKIN ULCER
     Dosage: 10 MG, QD
     Route: 048
     Dates: start: 20180126, end: 20180130

REACTIONS (1)
  - Interstitial lung disease [Fatal]

NARRATIVE: CASE EVENT DATE: 20180130
